FAERS Safety Report 5951071-2 (Version None)
Quarter: 2008Q4

REPORT INFORMATION
  Report Type: 
  Country: None (occurrence: None)
  Receive Date: 20081111
  Receipt Date: 20081111
  Transmission Date: 20090506
  Serious: Yes (Hospitalization)
  Sender: FDA-Public Use
  Company Number: None

PATIENT
  Age: 56 Year
  Sex: Male

DRUGS (1)
  1. ROPINIROLE [Suspect]
     Indication: RESTLESS LEGS SYNDROME
     Dosage: 0.5 MG QHS PO
     Route: 048
     Dates: start: 20060913, end: 20061202

REACTIONS (3)
  - CATATONIA [None]
  - CONFUSIONAL STATE [None]
  - MENTAL STATUS CHANGES [None]
